FAERS Safety Report 7233246-8 (Version None)
Quarter: 2011Q1

REPORT INFORMATION
  Report Type: 
  Country: None (occurrence: None)
  Receive Date: 20110119
  Receipt Date: 20110107
  Transmission Date: 20110831
  Serious: Yes (Hospitalization)
  Sender: FDA-Public Use
  Company Number: B0688577A

PATIENT
  Sex: Male
  Weight: 76 kg

DRUGS (21)
  1. IRSOGLADINE [Concomitant]
     Dosage: 2IUAX PER DAY
     Route: 048
     Dates: start: 20100521, end: 20100711
  2. MAGMITT [Concomitant]
     Dosage: 1500MG PER DAY
     Route: 048
     Dates: start: 20100609, end: 20100711
  3. ALKERAN [Suspect]
     Indication: STEM CELL TRANSPLANT
     Dosage: 130MG PER DAY
     Route: 042
     Dates: start: 20100518, end: 20100518
  4. FAMOTIDINE [Concomitant]
     Dosage: 20MG PER DAY
     Route: 048
     Dates: start: 20100521, end: 20100711
  5. TEPRENONE [Concomitant]
     Dosage: 50MG PER DAY
     Route: 048
     Dates: start: 20100524
  6. TEICOPLANIN [Concomitant]
     Dosage: 400MG PER DAY
     Route: 042
     Dates: start: 20100528, end: 20100608
  7. MEROPENEM [Concomitant]
     Dosage: 3G PER DAY
     Route: 042
     Dates: start: 20100526, end: 20100608
  8. ENDOXAN [Suspect]
     Indication: STEM CELL TRANSPLANT
     Dosage: 60MGK PER DAY
     Dates: start: 20100515, end: 20100516
  9. GRANISETRON HCL [Concomitant]
     Dosage: 3MG PER DAY
     Route: 042
     Dates: start: 20100515, end: 20100518
  10. BAKTAR [Concomitant]
     Dosage: 2IUAX PER DAY
     Route: 048
     Dates: start: 20100123, end: 20100711
  11. ROHYPNOL [Concomitant]
     Dosage: 1IUAX PER DAY
     Route: 048
     Dates: start: 20100521, end: 20100711
  12. GRAN [Concomitant]
     Dates: start: 20100521, end: 20100625
  13. MYSLEE [Concomitant]
     Dosage: 5MG PER DAY
     Route: 048
     Dates: start: 20100521, end: 20100617
  14. FUNGUARD [Concomitant]
     Dosage: 100MG PER DAY
     Route: 042
     Dates: start: 20100530, end: 20100608
  15. LOXOPROFEN [Concomitant]
     Route: 048
     Dates: start: 20100524
  16. ETOPOSIDE [Suspect]
     Indication: STEM CELL TRANSPLANT
     Dosage: 500MGM2 PER DAY
     Route: 042
     Dates: start: 20100515, end: 20100517
  17. DEXAMETHASONE SODIUM PHOSPHATE [Suspect]
     Indication: STEM CELL TRANSPLANT
     Dosage: 40MGM2 PER DAY
     Dates: start: 20100515, end: 20100518
  18. FUROSEMIDE [Concomitant]
     Dosage: 20MG PER DAY
     Route: 042
     Dates: start: 20100516, end: 20100518
  19. SOLU-CORTEF [Concomitant]
     Dosage: 100MG PER DAY
     Dates: start: 20100519, end: 20100519
  20. GASCON [Concomitant]
     Dosage: 120MG PER DAY
     Route: 048
     Dates: start: 20100609, end: 20100711
  21. DIAMOX [Concomitant]
     Dosage: 2IUAX PER DAY
     Route: 048
     Dates: start: 20100515, end: 20100518

REACTIONS (2)
  - PYREXIA [None]
  - CYTOMEGALOVIRUS CHORIORETINITIS [None]
